FAERS Safety Report 10206641 (Version 2)
Quarter: 2014Q2

REPORT INFORMATION
  Report Type: Spontaneous
  Country: US (occurrence: US)
  Receive Date: 20140530
  Receipt Date: 20140616
  Transmission Date: 20141212
  Serious: Yes (Death, Hospitalization)
  Sender: FDA-Public Use
  Company Number: US-SA-2014SA067489

PATIENT
  Age: 41 Year
  Sex: Male

DRUGS (6)
  1. FABRAZYME [Suspect]
     Indication: FABRY^S DISEASE
     Route: 042
  2. BENADRYL [Concomitant]
     Indication: PREMEDICATION
     Dosage: 25-50 MG PO EVERY 8 HOURS AS NEEDED
  3. PREDNISONE [Concomitant]
     Indication: PREMEDICATION
  4. ZYRTEC [Concomitant]
     Indication: PREMEDICATION
  5. ASPIRIN [Concomitant]
  6. HEPARIN [Concomitant]

REACTIONS (6)
  - Death [Fatal]
  - Cardiac arrest [Recovered/Resolved]
  - Neurological decompensation [Not Recovered/Not Resolved]
  - Road traffic accident [Unknown]
  - Atrial fibrillation [Not Recovered/Not Resolved]
  - Injury [Not Recovered/Not Resolved]
